FAERS Safety Report 13179555 (Version 1)
Quarter: 2017Q1

REPORT INFORMATION
  Report Type: Spontaneous
  Country: US (occurrence: US)
  Receive Date: 20170201
  Receipt Date: 20170201
  Transmission Date: 20170428
  Serious: No
  Sender: FDA-Public Use
  Company Number: None

PATIENT
  Age: 21 Year
  Sex: Male
  Weight: 63 kg

DRUGS (2)
  1. ZITHROMAX [Suspect]
     Active Substance: AZITHROMYCIN DIHYDRATE
     Indication: KIDNEY INFECTION
     Dates: start: 20170201, end: 20170201
  2. ZITHROMAX [Suspect]
     Active Substance: AZITHROMYCIN DIHYDRATE
     Indication: NEPHROLITHIASIS
     Dates: start: 20170201, end: 20170201

REACTIONS (7)
  - Asthenia [None]
  - Headache [None]
  - Vomiting [None]
  - Diarrhoea [None]
  - Feeling abnormal [None]
  - Dysphagia [None]
  - Abdominal pain upper [None]

NARRATIVE: CASE EVENT DATE: 20170201
